FAERS Safety Report 6231662-4 (Version None)
Quarter: 2009Q2

REPORT INFORMATION
  Report Type: 
  Country: None (occurrence: None)
  Receive Date: 20090616
  Receipt Date: 20090605
  Transmission Date: 20091009
  Serious: Yes (Hospitalization)
  Sender: FDA-Public Use
  Company Number: US-MERCK-0906USA01982

PATIENT
  Age: 60 Year
  Sex: Male
  Weight: 134 kg

DRUGS (4)
  1. COZAAR [Suspect]
     Route: 048
     Dates: end: 20030801
  2. ALTACE [Suspect]
     Route: 065
     Dates: end: 20030801
  3. LASIX [Suspect]
     Route: 065
     Dates: end: 20030801
  4. ZAROXOLYN [Suspect]
     Route: 065
     Dates: end: 20030801

REACTIONS (9)
  - ACUTE RESPIRATORY FAILURE [None]
  - CHRONIC OBSTRUCTIVE PULMONARY DISEASE [None]
  - CHRONIC RESPIRATORY FAILURE [None]
  - COR PULMONALE [None]
  - OEDEMA PERIPHERAL [None]
  - PAIN [None]
  - RENAL FAILURE [None]
  - SLEEP APNOEA SYNDROME [None]
  - VENOUS INSUFFICIENCY [None]
